FAERS Safety Report 11004670 (Version 1)
Quarter: 2015Q2

REPORT INFORMATION
  Report Type: Spontaneous
  Country: US (occurrence: None)
  Receive Date: 20150408
  Receipt Date: 20150408
  Transmission Date: 20150821
  Serious: No
  Sender: FDA-Public Use
  Company Number: None

PATIENT
  Age: 55 Year
  Sex: Male
  Weight: 88.4 kg

DRUGS (4)
  1. MULTIVITAMIN [Concomitant]
     Active Substance: VITAMINS
  2. TRETINOIN. [Suspect]
     Active Substance: TRETINOIN
     Indication: ACUTE PROMYELOCYTIC LEUKAEMIA
     Dosage: 5 CAPSULES QAM + 4 CAPSULES PM
     Route: 048
     Dates: start: 20141109, end: 20150209
  3. ASPIRIN. [Concomitant]
     Active Substance: ASPIRIN
  4. SAW PALMETTO [Concomitant]
     Active Substance: SAW PALMETTO

REACTIONS (4)
  - Product quality issue [None]
  - Fatigue [None]
  - Migraine [None]
  - Product formulation issue [None]

NARRATIVE: CASE EVENT DATE: 20141115
